FAERS Safety Report 18432633 (Version 2)
Quarter: 2021Q2

REPORT INFORMATION
  Report Type: Spontaneous
  Country: DZ (occurrence: DZ)
  Receive Date: 20201027
  Receipt Date: 20210506
  Transmission Date: 20210717
  Serious: Yes (Other)
  Sender: FDA-Public Use
  Company Number: DZ-BIOVITRUM-2020DZ5719

PATIENT
  Age: 10 Year
  Sex: Female
  Weight: 43 kg

DRUGS (2)
  1. KINERET [Suspect]
     Active Substance: ANAKINRA
     Route: 058
     Dates: end: 201810
  2. KINERET [Suspect]
     Active Substance: ANAKINRA
     Indication: STILL^S DISEASE
     Route: 058
     Dates: start: 201610, end: 201810

REACTIONS (9)
  - Still^s disease [Unknown]
  - Drug ineffective [Unknown]
  - Cardiogenic shock [Unknown]
  - Skin induration [Recovered/Resolved]
  - Dermatitis psoriasiform [Recovered/Resolved]
  - Haemophagocytic lymphohistiocytosis [Unknown]
  - Injection site pain [Recovered/Resolved]
  - Condition aggravated [Unknown]
  - Treatment failure [Unknown]

NARRATIVE: CASE EVENT DATE: 201610
